FAERS Safety Report 12277709 (Version 1)
Quarter: 2016Q2

REPORT INFORMATION
  Report Type: Spontaneous
  Country: US (occurrence: US)
  Receive Date: 20160418
  Receipt Date: 20160418
  Transmission Date: 20160815
  Serious: Yes (Hospitalization)
  Sender: FDA-Public Use
  Company Number: US-DSJP-DSU-2015-121009

PATIENT

DRUGS (24)
  1. METAMUCIL [Concomitant]
     Active Substance: PLANTAGO SEED
     Indication: IRRITABLE BOWEL SYNDROME
     Dosage: 2 WAFER, QD
     Route: 048
  2. RISPERDAL [Concomitant]
     Active Substance: RISPERIDONE
     Indication: ANTIPSYCHOTIC DRUG LEVEL
     Dosage: 1 MG, QD
     Route: 048
  3. LANTUS [Concomitant]
     Active Substance: INSULIN GLARGINE
     Indication: DIABETES MELLITUS
     Dosage: 100UNIT/ML, UNK
     Route: 058
  4. HYOSCYAMINE. [Concomitant]
     Active Substance: HYOSCYAMINE
     Indication: PRODUCT USED FOR UNKNOWN INDICATION
     Dosage: UNK
  5. ATIVAN [Concomitant]
     Active Substance: LORAZEPAM
     Indication: SEIZURE
  6. HYDROXYZINE [Concomitant]
     Active Substance: HYDROXYZINE\HYDROXYZINE HYDROCHLORIDE
     Indication: HYPERSENSITIVITY
     Dosage: 50 MG, UNK
  7. HYDROCORTISONE. [Concomitant]
     Active Substance: HYDROCORTISONE
     Indication: DERMATITIS CONTACT
     Dosage: 2.5 %, BID
  8. HYDROCHLOROTHIAZIDE. [Concomitant]
     Active Substance: HYDROCHLOROTHIAZIDE
     Indication: HYPERTENSION
     Dosage: 12.5 MG, UNK
     Route: 048
  9. OMEPRAZOLE. [Concomitant]
     Active Substance: OMEPRAZOLE
     Indication: PRODUCT USED FOR UNKNOWN INDICATION
     Dosage: 20 MG, QD
     Route: 048
  10. BENICAR HCT [Suspect]
     Active Substance: HYDROCHLOROTHIAZIDE\OLMESARTAN MEDOXOMIL
     Dosage: 40/25 MG, QD
     Route: 048
     Dates: start: 200802, end: 201311
  11. METFORMIN [Concomitant]
     Active Substance: METFORMIN HYDROCHLORIDE
     Indication: DIABETES MELLITUS
     Dosage: 500 MG, QD
     Route: 048
  12. NYSTOP [Concomitant]
     Active Substance: NYSTATIN
     Indication: DERMATOPHYTOSIS
     Dosage: 5 G, UNK
  13. CINNAMON                           /01647501/ [Concomitant]
     Active Substance: CINNAMON
     Indication: PRODUCT USED FOR UNKNOWN INDICATION
     Dosage: 500 MG, QD
     Route: 048
  14. BENICAR HCT [Suspect]
     Active Substance: HYDROCHLOROTHIAZIDE\OLMESARTAN MEDOXOMIL
     Indication: HYPERTENSION
     Dosage: UNK
     Dates: start: 201101
  15. BENICAR HCT [Suspect]
     Active Substance: HYDROCHLOROTHIAZIDE\OLMESARTAN MEDOXOMIL
     Dosage: 20/12.5 MG, UNK
     Dates: start: 200802, end: 201311
  16. ATIVAN [Concomitant]
     Active Substance: LORAZEPAM
     Indication: ANXIETY
     Dosage: 0.5 MG, BID
  17. CALCIUM [Concomitant]
     Active Substance: CALCIUM
     Indication: PRODUCT USED FOR UNKNOWN INDICATION
     Dosage: 500 MG, UNK
  18. PULMICORT TURBUHALER [Concomitant]
     Active Substance: BUDESONIDE
     Indication: ASTHMA
     Dosage: 200 ?G, UNK
  19. PROAIR HFA [Concomitant]
     Active Substance: ALBUTEROL SULFATE
     Indication: ASTHMA
     Dosage: UNK, QID
     Route: 045
  20. LEVETIRACETAM. [Concomitant]
     Active Substance: LEVETIRACETAM
     Indication: SEIZURE
     Dosage: 1500 MG, QD
  21. ZOLOFT [Concomitant]
     Active Substance: SERTRALINE HYDROCHLORIDE
     Indication: DEPRESSION
     Dosage: 100 MG, QD
     Route: 048
  22. SYNTHROID [Concomitant]
     Active Substance: LEVOTHYROXINE SODIUM
     Indication: HYPOTHYROIDISM
     Dosage: 50 ?G, QD
     Route: 048
  23. CRESTOR [Concomitant]
     Active Substance: ROSUVASTATIN CALCIUM
     Indication: BLOOD CHOLESTEROL INCREASED
     Dosage: 10 MG, UNK
  24. ZETIA [Concomitant]
     Active Substance: EZETIMIBE
     Indication: BLOOD CHOLESTEROL INCREASED
     Dosage: 10 MG, QD
     Route: 048

REACTIONS (4)
  - Rectal haemorrhage [Not Recovered/Not Resolved]
  - Diverticulum [Unknown]
  - Haemorrhoids [Unknown]
  - Malabsorption [Not Recovered/Not Resolved]

NARRATIVE: CASE EVENT DATE: 2008
